FAERS Safety Report 9985311 (Version 1)
Quarter: 2014Q1

REPORT INFORMATION
  Report Type: Spontaneous
  Country: US (occurrence: DE)
  Receive Date: 20140307
  Receipt Date: 20140307
  Transmission Date: 20141002
  Serious: Yes (Death)
  Sender: FDA-Public Use
  Company Number: DE-ASTRAZENECA-2014SE15136

PATIENT
  Age: 57 Year
  Sex: Male

DRUGS (2)
  1. ROPIVACAINE [Suspect]
     Indication: MUSCLE RELAXANT THERAPY
     Dosage: ESTIMATED INFUSION TO BE 1540 MG
     Route: 042
  2. INTRALIPID [Concomitant]
     Indication: PRODUCT USED FOR UNKNOWN INDICATION
     Dosage: A TOTAL OF 2,480 ML INTRALIPIDS 20 PERCENT

REACTIONS (1)
  - Toxicity to various agents [Fatal]
